FAERS Safety Report 9944957 (Version 1)
Quarter: 2014Q1

REPORT INFORMATION
  Report Type: Report from Study
  Country: US (occurrence: US)
  Receive Date: 20140303
  Receipt Date: 20140303
  Transmission Date: 20141002
  Serious: No
  Sender: FDA-Public Use
  Company Number: US-ABBVIE-13P-163-1055344-00

PATIENT
  Age: 27 Year
  Sex: Female

DRUGS (4)
  1. HUMIRA [Suspect]
     Indication: CROHN^S DISEASE
  2. SYNTHROID [Concomitant]
     Indication: THYROID DISORDER
  3. LOESTRIN FE 28 [Concomitant]
     Indication: CONTRACEPTION
  4. HYDROCODONE [Concomitant]
     Indication: CROHN^S DISEASE
     Dosage: 5/500 MG AS NEEDED

REACTIONS (2)
  - Pyrexia [Recovering/Resolving]
  - Upper respiratory tract infection [Recovering/Resolving]
